FAERS Safety Report 19702216 (Version 3)
Quarter: 2024Q4

REPORT INFORMATION
  Report Type: Spontaneous
  Country: DE (occurrence: DE)
  Receive Date: 20210814
  Receipt Date: 20241226
  Transmission Date: 20250114
  Serious: Yes (Death, Life-Threatening, Other)
  Sender: AUROBINDO
  Company Number: DE-EMA-DD-20171130-NEGIEVPROD-085341

PATIENT
  Age: 47 Year
  Sex: Male

DRUGS (15)
  1. VINORELBINE [Suspect]
     Active Substance: VINORELBINE TARTRATE
     Indication: Non-small cell lung cancer
     Dosage: UNK, CYCLICAL
     Route: 065
     Dates: start: 201502
  2. VINORELBINE [Suspect]
     Active Substance: VINORELBINE TARTRATE
     Indication: Squamous cell carcinoma
  3. VINORELBINE [Suspect]
     Active Substance: VINORELBINE TARTRATE
     Indication: Chemotherapy
  4. GEMCITABINE [Suspect]
     Active Substance: GEMCITABINE
     Indication: Non-small cell lung cancer
     Dosage: 1 CYCLICAL, 3RD AND 4TH LINE THERAPY
     Route: 065
  5. DOCETAXEL [Suspect]
     Active Substance: DOCETAXEL
     Indication: Non-small cell lung cancer
     Dosage: CYCLICAL, 3RD AND 4TH LINE THERAPY
     Route: 065
  6. CISPLATIN [Suspect]
     Active Substance: CISPLATIN
     Indication: Non-small cell lung cancer
     Dosage: UNK, CYCLICAL
     Route: 065
     Dates: start: 201502
  7. CISPLATIN [Suspect]
     Active Substance: CISPLATIN
     Indication: Squamous cell carcinoma
  8. CISPLATIN [Suspect]
     Active Substance: CISPLATIN
     Indication: Chemotherapy
  9. DARUNAVIR [Concomitant]
     Active Substance: DARUNAVIR
     Indication: HIV infection
     Dosage: UNK, ANTIRETROVIRAL THERAPY
     Route: 065
  10. DARUNAVIR [Concomitant]
     Active Substance: DARUNAVIR
     Indication: Antiretroviral therapy
  11. DOLUTEGRAVIR [Concomitant]
     Active Substance: DOLUTEGRAVIR
     Indication: HIV infection
     Dosage: CYCLICA, ANTIRETROVIRAL THERAPY
     Route: 065
  12. DOLUTEGRAVIR [Concomitant]
     Active Substance: DOLUTEGRAVIR
     Indication: Antiretroviral therapy
  13. RITONAVIR [Concomitant]
     Active Substance: RITONAVIR
     Indication: HIV infection
     Dosage: UNK, ANTIRETROVIRAL THERAPY
     Route: 065
  14. RITONAVIR [Concomitant]
     Active Substance: RITONAVIR
     Indication: Antiretroviral therapy
  15. NIVOLUMAB [Concomitant]
     Active Substance: NIVOLUMAB
     Indication: Metastases to lymph nodes
     Dosage: 3 MILLIGRAM/KILOGRAM, CYCLICAL
     Route: 065
     Dates: start: 201603

REACTIONS (4)
  - Neutropenic sepsis [Fatal]
  - Enteritis [Fatal]
  - Treatment failure [Fatal]
  - Drug ineffective [Fatal]
